FAERS Safety Report 11200271 (Version 2)
Quarter: 2015Q2

REPORT INFORMATION
  Report Type: Spontaneous
  Country: JP (occurrence: JP)
  Receive Date: 20150618
  Receipt Date: 20150623
  Transmission Date: 20150821
  Serious: Yes (Death, Hospitalization, Other)
  Sender: FDA-Public Use
  Company Number: JP-BAYER-2015-323558

PATIENT
  Age: 3 Year
  Sex: Male

DRUGS (1)
  1. ACETYLSALICYLIC ACID (} 100 MG) [Suspect]
     Active Substance: ASPIRIN
     Route: 048

REACTIONS (5)
  - Abdominal adhesions [None]
  - Gastrointestinal haemorrhage [None]
  - Multi-organ failure [Fatal]
  - Gastric perforation [None]
  - Abdominal abscess [None]
